FAERS Safety Report 5828181-3 (Version None)
Quarter: 2008Q3

REPORT INFORMATION
  Report Type: 
  Country: None (occurrence: None)
  Receive Date: 20080731
  Receipt Date: 20080725
  Transmission Date: 20090109
  Serious: Yes (Death)
  Sender: FDA-Public Use
  Company Number: GB-BRISTOL-MYERS SQUIBB COMPANY-13921366

PATIENT

DRUGS (8)
  1. ETOPOSIDE [Suspect]
     Indication: GERM CELL CANCER
     Dates: start: 19980729, end: 19980801
  2. CISPLATIN [Suspect]
     Indication: GERM CELL CANCER
     Dates: start: 19980730, end: 19980731
  3. METHOTREXATE [Suspect]
     Indication: GERM CELL CANCER
     Dates: start: 19980728, end: 19980729
  4. DACTINOMYCIN [Suspect]
     Indication: GERM CELL CANCER
     Route: 042
     Dates: start: 19980729, end: 19980729
  5. ACETAZOLAMIDE [Concomitant]
     Dates: start: 19980729, end: 19980731
  6. DEXTROSE [Concomitant]
     Dates: start: 19980729, end: 19980730
  7. FILGRASTIM [Concomitant]
     Dates: start: 19980731, end: 19980809
  8. FOLINIC ACID [Concomitant]
     Dates: start: 19980730, end: 19980803

REACTIONS (2)
  - FEBRILE NEUTROPENIA [None]
  - INTRA-ABDOMINAL HAEMORRHAGE [None]
